FAERS Safety Report 10049918 (Version 1)
Quarter: 2014Q1

REPORT INFORMATION
  Report Type: Spontaneous
  Country: US (occurrence: None)
  Receive Date: 20140331
  Receipt Date: 20140331
  Transmission Date: 20141002
  Serious: Yes (Life-Threatening, Hospitalization)
  Sender: FDA-Public Use
  Company Number: None

PATIENT
  Age: 45 Year
  Sex: Male
  Weight: 78.4 kg

DRUGS (3)
  1. HECTOROL [Suspect]
     Indication: SECONDARY HYPERTHYROIDISM
     Dosage: 2 MCG IVP QTX
     Route: 042
     Dates: start: 20140129
  2. EPOGEN [Concomitant]
  3. VENOFER [Concomitant]

REACTIONS (1)
  - Cardio-respiratory arrest [None]
